FAERS Safety Report 9964971 (Version 1)
Quarter: 2014Q1

REPORT INFORMATION
  Report Type: Report from Study
  Country: US (occurrence: US)
  Receive Date: 20140305
  Receipt Date: 20140305
  Transmission Date: 20141002
  Serious: No
  Sender: FDA-Public Use
  Company Number: US-ABBVIE-13P-163-1128340-00

PATIENT
  Age: 36 Year
  Sex: Male
  Weight: 84.44 kg

DRUGS (2)
  1. HUMIRA [Suspect]
     Indication: COLITIS ULCERATIVE
     Dosage: 160MG, 80MG INDUCTION
     Route: 058
     Dates: start: 20130713
  2. AZATHIOPRINE [Concomitant]
     Indication: PRODUCT USED FOR UNKNOWN INDICATION

REACTIONS (4)
  - Lip swelling [Unknown]
  - Rash macular [Unknown]
  - Pyrexia [Unknown]
  - Nausea [Unknown]
